FAERS Safety Report 14511865 (Version 3)
Quarter: 2018Q2

REPORT INFORMATION
  Report Type: Spontaneous
  Country: FR (occurrence: FR)
  Receive Date: 20180209
  Receipt Date: 20180504
  Transmission Date: 20180711
  Serious: Yes (Hospitalization, Other)
  Sender: FDA-Public Use
  Company Number: PHHY2016FR186044

PATIENT
  Age: 55 Year
  Sex: Male

DRUGS (17)
  1. MYFORTIC [Suspect]
     Active Substance: MYCOPHENOLATE SODIUM
     Indication: IMMUNOSUPPRESSION
     Dosage: 720 OT, BID
     Route: 048
     Dates: start: 20150130
  2. ATARAX [Concomitant]
     Active Substance: HYDROXYZINE HYDROCHLORIDE
     Indication: ANXIETY
     Dosage: 25 UNITS NOT REPORTED
     Route: 048
  3. TIORFAN [Concomitant]
     Active Substance: RACECADOTRIL
     Indication: DIARRHOEA
     Dosage: UNK
     Route: 048
  4. ROVALCYTE [Concomitant]
     Active Substance: VALGANCICLOVIR HYDROCHLORIDE
     Indication: PROPHYLAXIS
     Dosage: 450 MG, UNK
     Route: 048
  5. TACROLIMUS. [Suspect]
     Active Substance: TACROLIMUS
     Dosage: 6 MG, QD
     Route: 048
     Dates: start: 20150116, end: 20150319
  6. PROGRAF [Suspect]
     Active Substance: TACROLIMUS\TACROLIMUS ANHYDROUS
     Dosage: UNK
     Route: 065
  7. TACROLIMUS. [Suspect]
     Active Substance: TACROLIMUS
     Indication: IMMUNOSUPPRESSION
     Dosage: 2 OT, BID
     Route: 048
     Dates: start: 20141026
  8. PROGRAF [Suspect]
     Active Substance: TACROLIMUS\TACROLIMUS ANHYDROUS
     Dosage: 2 MG, UNK
     Route: 065
     Dates: start: 20150717
  9. CELLCEPT [Suspect]
     Active Substance: MYCOPHENOLATE MOFETIL\MYCOPHENOLATE MOFETIL HYDROCHLORIDE
     Indication: IMMUNOSUPPRESSION
     Dosage: 2000 MG, QD
     Route: 065
     Dates: end: 20150130
  10. TIORFAN [Concomitant]
     Active Substance: RACECADOTRIL
     Dosage: UNK UNK, UNKNOWN FREQ.
     Route: 048
  11. MYFORTIC [Suspect]
     Active Substance: MYCOPHENOLATE SODIUM
     Dosage: 720 (UNITS NOT REPORTED), TWICE DAILY (TOTAL DAILY DOSE 1440)
     Route: 048
     Dates: start: 20150130
  12. PROGRAF [Suspect]
     Active Substance: TACROLIMUS\TACROLIMUS ANHYDROUS
     Indication: IMMUNOSUPPRESSION
     Dosage: 7 MG, QD
     Route: 065
     Dates: start: 20150313
  13. INEXIUM [Concomitant]
     Active Substance: ESOMEPRAZOLE
     Indication: PROPHYLAXIS
     Dosage: 40 OT, UNK
     Route: 048
  14. TACROLIMUS. [Suspect]
     Active Substance: TACROLIMUS
     Dosage: 7 MG, QD
     Route: 048
     Dates: start: 20150110
  15. CORTANCYL [Concomitant]
     Active Substance: PREDNISONE
     Indication: IMMUNOSUPPRESSION
     Dosage: 7.5 MG UNITS.
     Route: 048
  16. TACROLIMUS. [Suspect]
     Active Substance: TACROLIMUS
     Dosage: 8 MG, QD (ONE HOUR BEFORE MEAL)
     Route: 048
     Dates: start: 20141221
  17. TACROLIMUS. [Suspect]
     Active Substance: TACROLIMUS
     Dosage: 9 MG, QD
     Route: 048
     Dates: start: 20141225

REACTIONS (12)
  - Cholestasis [Recovered/Resolved]
  - Diarrhoea [Recovered/Resolved]
  - Drug intolerance [Not Recovered/Not Resolved]
  - Pancytopenia [Recovered/Resolved]
  - Renal failure [Not Recovered/Not Resolved]
  - Pseudomonas infection [Recovered/Resolved]
  - Nephropathy toxic [Unknown]
  - Febrile infection [Recovered/Resolved]
  - Renal failure [Recovered/Resolved]
  - Cytomegalovirus infection [Recovered/Resolved]
  - Renal failure [Recovered/Resolved]
  - White blood cell count decreased [Not Recovered/Not Resolved]

NARRATIVE: CASE EVENT DATE: 20150109
